FAERS Safety Report 6486657-2 (Version None)
Quarter: 2009Q4

REPORT INFORMATION
  Report Type: 
  Country: None (occurrence: None)
  Receive Date: 20091210
  Receipt Date: 20091201
  Transmission Date: 20100525
  Serious: Yes (Hospitalization)
  Sender: FDA-Public Use
  Company Number: US-ROCHE-664420

PATIENT
  Sex: Male
  Weight: 99.8 kg

DRUGS (1)
  1. CAPECITABINE [Suspect]
     Indication: COLORECTAL CANCER
     Dosage: DOSE: 4 TABS IN AM AND PM; 14 DAYS ON AND 7 DAYS OFF
     Route: 048
     Dates: start: 20090703, end: 20091023

REACTIONS (3)
  - COLON CANCER [None]
  - MALIGNANT NEOPLASM PROGRESSION [None]
  - SMALL INTESTINAL OBSTRUCTION [None]
